FAERS Safety Report 6583385-X (Version None)
Quarter: 2010Q1

REPORT INFORMATION
  Report Type: 
  Country: None (occurrence: None)
  Receive Date: 20100216
  Receipt Date: 20100203
  Transmission Date: 20100710
  Serious: Yes (Other)
  Sender: FDA-Public Use
  Company Number: JP-PFIZER INC-2010015868

PATIENT
  Age: 22 Year
  Sex: Male

DRUGS (5)
  1. VORICONAZOLE [Suspect]
     Indication: PNEUMONIA
     Dosage: 4 MG/KG, 2X/DAY
     Route: 042
  2. VORICONAZOLE [Suspect]
     Indication: ASPERGILLOSIS
     Dosage: 400 MG DAILY
  3. ITRACONAZOLE [Suspect]
     Indication: FEBRILE NEUTROPENIA
  4. VANCOMYCIN [Concomitant]
     Indication: PNEUMONIA
  5. MEROPENEM [Concomitant]
     Indication: PNEUMONIA

REACTIONS (3)
  - DRUG INEFFECTIVE [None]
  - PATHOGEN RESISTANCE [None]
  - PNEUMONIA FUNGAL [None]
